FAERS Safety Report 5796382-9 (Version None)
Quarter: 2008Q2

REPORT INFORMATION
  Report Type: 
  Country: None (occurrence: None)
  Receive Date: 20080630
  Receipt Date: 20080630
  Transmission Date: 20081010
  Serious: Yes (Life-Threatening)
  Sender: FDA-Public Use
  Company Number: None

PATIENT
  Age: 32 Year
  Sex: Male
  Weight: 88.4514 kg

DRUGS (2)
  1. LAMICTAL [Suspect]
     Indication: BIPOLAR DISORDER
     Dosage: 100MG 1 TIME A DAY ABOUT 4-5 WEEKS
     Dates: start: 20080501, end: 20080620
  2. LAMICTAL [Suspect]
     Indication: OBSESSIVE-COMPULSIVE DISORDER
     Dosage: 100MG 1 TIME A DAY ABOUT 4-5 WEEKS
     Dates: start: 20080501, end: 20080620

REACTIONS (1)
  - STEVENS-JOHNSON SYNDROME [None]
